FAERS Safety Report 5730124-8 (Version None)
Quarter: 2008Q2

REPORT INFORMATION
  Report Type: 
  Country: None (occurrence: None)
  Receive Date: 20080507
  Receipt Date: 20080430
  Transmission Date: 20081010
  Serious: Yes (Other)
  Sender: FDA-Public Use
  Company Number: US-BAYER-200815856NA

PATIENT
  Age: 59 Year
  Sex: Female

DRUGS (3)
  1. AVELOX [Suspect]
     Indication: DRUG USE FOR UNKNOWN INDICATION
     Dosage: TOTAL DAILY DOSE: 400 MG  UNIT DOSE: 400 MG
     Route: 048
     Dates: start: 20080108
  2. MIGRAINE MEDICATION [Concomitant]
     Indication: DRUG USE FOR UNKNOWN INDICATION
  3. FEXOFENADINE [Concomitant]
     Indication: DRUG USE FOR UNKNOWN INDICATION

REACTIONS (5)
  - ANAPHYLACTIC REACTION [None]
  - DYSPHAGIA [None]
  - DYSPHONIA [None]
  - ERYTHEMA [None]
  - PRURITUS [None]
